FAERS Safety Report 6921430-X (Version None)
Quarter: 2010Q3

REPORT INFORMATION
  Report Type: 
  Country: None (occurrence: None)
  Receive Date: 20100812
  Receipt Date: 20100803
  Transmission Date: 20110219
  Serious: Yes (Other)
  Sender: FDA-Public Use
  Company Number: GXKR2010JP08701

PATIENT
  Age: 24 Year
  Sex: Female

DRUGS (6)
  1. PREDNISOLONE (NGX) [Suspect]
     Indication: SYSTEMIC LUPUS ERYTHEMATOSUS
     Dosage: 30 MG/DAY
     Route: 065
     Dates: start: 19990101
  2. PREDNISOLONE (NGX) [Suspect]
     Dosage: TAPERED TO 5 MG/DAY
     Route: 065
  3. PREDNISOLONE (NGX) [Suspect]
     Dosage: 50 MG/DAY
     Route: 065
     Dates: start: 20040201
  4. PREDNISOLONE (NGX) [Suspect]
     Dosage: 40 MG/DAY
     Route: 065
  5. METHYLPREDNISOLONE [Concomitant]
     Indication: SYSTEMIC LUPUS ERYTHEMATOSUS
     Dosage: 1 G/DAY
     Route: 065
     Dates: start: 19990101
  6. ANTIBIOTICS [Concomitant]

REACTIONS (2)
  - ATRIAL THROMBOSIS [None]
  - VENA CAVA THROMBOSIS [None]
